FAERS Safety Report 17623496 (Version 2)
Quarter: 2021Q2

REPORT INFORMATION
  Report Type: Spontaneous
  Country: FR (occurrence: FR)
  Receive Date: 20200403
  Receipt Date: 20210514
  Transmission Date: 20210716
  Serious: Yes (Life-Threatening, Hospitalization, Other)
  Sender: FDA-Public Use
  Company Number: FR-MYLANLABS-2020M1034579

PATIENT
  Age: 2 Year
  Sex: Female
  Weight: 12.5 kg

DRUGS (7)
  1. CICLOSPORIN [Interacting]
     Active Substance: CYCLOSPORINE
     Indication: LUNG TRANSPLANT
     Dosage: 250 MILLIGRAM, QD
     Route: 048
     Dates: start: 20190703
  2. IMIPENEM CILASTATINE MYLAN [Interacting]
     Active Substance: IMIPENEM
     Indication: ACUTE RESPIRATORY DISTRESS SYNDROME
     Dosage: 600 MILLIGRAM, QD
     Route: 041
     Dates: start: 20190730, end: 20190811
  3. LASILIX                            /00032601/ [Interacting]
     Active Substance: FUROSEMIDE
     Indication: URINE OUTPUT DECREASED
     Dosage: 6.26 MILLIGRAM, QD
     Route: 042
     Dates: start: 20190720, end: 20190813
  4. IMUREL                             /00001501/ [Interacting]
     Active Substance: AZATHIOPRINE SODIUM
     Indication: LUNG TRANSPLANT
     Dosage: 5 MILLIGRAM, QD
     Route: 048
     Dates: start: 20190703, end: 20190811
  5. CIDOFOVIR. [Interacting]
     Active Substance: CIDOFOVIR
     Indication: CYTOMEGALOVIRUS INFECTION
     Dosage: 5 MILLIGRAM/KILOGRAM, QW
     Route: 041
     Dates: start: 20190803, end: 20190816
  6. ACICLOVIR [Suspect]
     Active Substance: ACYCLOVIR
     Indication: PROPHYLAXIS
     Dosage: 100 MILLIGRAM, QD
     Route: 048
     Dates: start: 201907
  7. ROVALCYTE [Interacting]
     Active Substance: VALGANCICLOVIR HYDROCHLORIDE
     Indication: PROPHYLAXIS
     Dosage: 100 MILLIGRAM, QD
     Route: 048
     Dates: start: 20190709

REACTIONS (3)
  - Drug interaction [Unknown]
  - Hyperlactacidaemia [Recovered/Resolved]
  - Acute kidney injury [Recovering/Resolving]

NARRATIVE: CASE EVENT DATE: 20190811
